FAERS Safety Report 21490944 (Version 1)
Quarter: 2022Q4

REPORT INFORMATION
  Report Type: Spontaneous
  Country: US (occurrence: None)
  Receive Date: 20221020
  Receipt Date: 20221020
  Transmission Date: 20230113
  Serious: No
  Sender: FDA-Public Use
  Company Number: None

PATIENT
  Age: 70 Year
  Sex: Male
  Weight: 69.4 kg

DRUGS (28)
  1. MEKINIST [Suspect]
     Active Substance: TRAMETINIB DIMETHYL SULFOXIDE
     Indication: Malignant melanoma
     Dosage: FREQUENCY : DAILY;?
     Route: 048
     Dates: start: 202209
  2. TAFINLAR [Suspect]
     Active Substance: DABRAFENIB MESYLATE
     Indication: Malignant melanoma
     Dosage: FREQUENCY : DAILY;?
     Route: 048
     Dates: start: 202209
  3. NORCO [Concomitant]
  4. ALPRAZOLAM [Concomitant]
  5. PROCHLORPERAZINE [Concomitant]
  6. ELIQUIS [Concomitant]
  7. AMOXICILLIN-POT [Concomitant]
  8. CLAVULANATE [Concomitant]
  9. CALCIUM CARBONATE [Concomitant]
  10. ATORVASTATIN CALCIUM [Concomitant]
  11. CARBIDOPA-LEVODOPA [Concomitant]
  12. CYCLOBENZAPRINE [Concomitant]
  13. DEXTROMETHORPHAN-GUAIFENESIN [Concomitant]
  14. Multi-Vitamin [Concomitant]
  15. DOCUSATA SODIUM [Concomitant]
  16. FOLIC ACID [Concomitant]
  17. FUROSDEMIDE [Concomitant]
  18. HYDROXYZINE [Concomitant]
  19. METOPROLOL SUCCINATE ER [Concomitant]
  20. NITROSTAT SUBLINGUAL [Concomitant]
  21. OMEPRAZOLE [Concomitant]
  22. CALCIUM PAROXETINE HCI [Concomitant]
  23. POTASSIUM CHLORIDE [Concomitant]
  24. PREGABALIN [Concomitant]
  25. RANOLAZINE ER [Concomitant]
  26. THIAMINE HCI [Concomitant]
  27. ACETAMINOPHEN [Concomitant]
  28. ZOFRAN [Concomitant]

REACTIONS (1)
  - Hospice care [None]
